FAERS Safety Report 21962795 (Version 1)
Quarter: 2023Q1

REPORT INFORMATION
  Report Type: Spontaneous
  Country: US (occurrence: US)
  Receive Date: 20230207
  Receipt Date: 20230207
  Transmission Date: 20230418
  Serious: No
  Sender: FDA-Public Use
  Company Number: US-PFIZER INC-PV202200035973

PATIENT
  Age: 63 Year
  Sex: Female

DRUGS (4)
  1. INLYTA [Suspect]
     Active Substance: AXITINIB
     Dosage: UNK
     Dates: start: 20211203
  2. INLYTA [Suspect]
     Active Substance: AXITINIB
     Dosage: TWO 1MG TABS AND ONE 5MG TAB
     Dates: start: 20211214
  3. INLYTA [Suspect]
     Active Substance: AXITINIB
     Dosage: TWO 5MG TABS
     Dates: start: 20220802, end: 20220802
  4. INLYTA [Suspect]
     Active Substance: AXITINIB
     Dosage: TWO 1MG TABS AND ONE 5MG TAB

REACTIONS (2)
  - Neoplasm progression [Unknown]
  - Wrong dose [Unknown]

NARRATIVE: CASE EVENT DATE: 20220802
